FAERS Safety Report 7761043-3 (Version None)
Quarter: 2011Q3

REPORT INFORMATION
  Report Type: 
  Country: None (occurrence: None)
  Receive Date: 20110920
  Receipt Date: 20110908
  Transmission Date: 20111222
  Serious: Yes (Other)
  Sender: FDA-Public Use
  Company Number: US-BAYER-201033654NA

PATIENT
  Age: 32 Year
  Sex: Female

DRUGS (6)
  1. PREVACID [Concomitant]
  2. YAZ [Suspect]
     Indication: CONTRACEPTION
     Dosage: UNK
     Dates: start: 20071024, end: 20081101
  3. ACIPHEX [Concomitant]
     Indication: GASTROOESOPHAGEAL REFLUX DISEASE
  4. AMOXICILLIN [Concomitant]
     Indication: ACUTE SINUSITIS
     Dosage: 875 MG, UNK
     Route: 048
     Dates: start: 20081006
  5. DARVOCET-N 50 [Concomitant]
     Indication: PAIN
     Dosage: UNK UNK, Q4HR
     Route: 048
  6. ACIPHEX [Concomitant]
     Indication: ABDOMINAL PAIN UPPER
     Dosage: UNK
     Route: 048
     Dates: start: 20081006

REACTIONS (4)
  - GALLBLADDER DISORDER [None]
  - ABDOMINAL PAIN UPPER [None]
  - NAUSEA [None]
  - BILIARY DYSKINESIA [None]
